FAERS Safety Report 6413350-4 (Version None)
Quarter: 2009Q4

REPORT INFORMATION
  Report Type: 
  Country: None (occurrence: None)
  Receive Date: 20091026
  Receipt Date: 20091022
  Transmission Date: 20100525
  Serious: Yes (Hospitalization)
  Sender: FDA-Public Use
  Company Number: SE-BRISTOL-MYERS SQUIBB COMPANY-14826234

PATIENT
  Age: 65 Year
  Sex: Male

DRUGS (2)
  1. ORENCIA [Suspect]
     Indication: RHEUMATOID ARTHRITIS
     Dosage: 750MG WHEN NEEDED.
     Dates: start: 20071207
  2. PREDNISOLONE [Concomitant]
     Dosage: PREDNISOLONE TABLET.

REACTIONS (2)
  - PALPITATIONS [None]
  - PYREXIA [None]
